FAERS Safety Report 12012965 (Version 1)
Quarter: 2016Q1

REPORT INFORMATION
  Report Type: Spontaneous
  Country: FR (occurrence: FR)
  Receive Date: 20160205
  Receipt Date: 20160205
  Transmission Date: 20160526
  Serious: Yes (Hospitalization, Other)
  Sender: FDA-Public Use
  Company Number: FR-BAXTER-2016BAX004567

PATIENT
  Age: 79 Year
  Sex: Male

DRUGS (2)
  1. ENDOXAN 1000 MG, POUDRE POUR SOLUTION INJECTABLE [Suspect]
     Active Substance: CYCLOPHOSPHAMIDE
     Indication: PRODUCT USED FOR UNKNOWN INDICATION
     Dosage: 1 DOSE
     Route: 042
     Dates: start: 201408
  2. ENDOXAN 1000 MG, POUDRE POUR SOLUTION INJECTABLE [Suspect]
     Active Substance: CYCLOPHOSPHAMIDE
     Dosage: 1 DOSE, 5TH COURSE
     Route: 042
     Dates: start: 20141110

REACTIONS (3)
  - Rash maculo-papular [Unknown]
  - Eosinophilia [Recovering/Resolving]
  - Purpura [Unknown]

NARRATIVE: CASE EVENT DATE: 20151128
